FAERS Safety Report 5920497-5 (Version None)
Quarter: 2008Q4

REPORT INFORMATION
  Report Type: 
  Country: None (occurrence: None)
  Receive Date: 20081016
  Receipt Date: 20081006
  Transmission Date: 20090506
  Serious: Yes (Disabling)
  Sender: FDA-Public Use
  Company Number: B0511184A

PATIENT
  Age: 37 Year
  Sex: Female

DRUGS (2)
  1. WELLBUTRIN SR [Suspect]
     Indication: DRUG USE FOR UNKNOWN INDICATION
     Dosage: 150MG TWICE PER DAY
     Route: 065
     Dates: start: 20021210
  2. DESOGESTREL AND ETHINYL ESTRADIOL [Concomitant]
     Dosage: 1TAB PER DAY

REACTIONS (2)
  - SYNCOPE [None]
  - VAGINAL HAEMORRHAGE [None]
